FAERS Safety Report 16942389 (Version 2)
Quarter: 2019Q4

REPORT INFORMATION
  Report Type: Spontaneous
  Country: US (occurrence: US)
  Receive Date: 20191021
  Receipt Date: 20191125
  Transmission Date: 20200122
  Serious: Yes (Death, Other)
  Sender: FDA-Public Use
  Company Number: US-ENDO PHARMACEUTICALS INC-2019-108813

PATIENT
  Age: 7 Year
  Sex: Male

DRUGS (1)
  1. ADRENALIN CHLORIDE SOLUTION [Suspect]
     Active Substance: EPINEPHRINE HYDROCHLORIDE
     Indication: PRODUCT USED FOR UNKNOWN INDICATION
     Dosage: 3 MG, SINGLE INFILTRATED IN EAR
     Route: 050
     Dates: start: 1996, end: 1996

REACTIONS (3)
  - Cardiac arrest [Fatal]
  - Wrong product administered [Unknown]
  - Incorrect route of product administration [Unknown]

NARRATIVE: CASE EVENT DATE: 1996
